FAERS Safety Report 6501840-5 (Version None)
Quarter: 2009Q4

REPORT INFORMATION
  Report Type: 
  Country: None (occurrence: None)
  Receive Date: 20091216
  Receipt Date: 20091215
  Transmission Date: 20100525
  Serious: Yes (Death)
  Sender: FDA-Public Use
  Company Number: US-WYE-H12624109

PATIENT
  Sex: Male

DRUGS (2)
  1. RAPAMUNE [Suspect]
     Route: 048
  2. RAPAMUNE [Suspect]
     Route: 048

REACTIONS (1)
  - DYSPNOEA [None]
